FAERS Safety Report 7969762-0 (Version None)
Quarter: 2011Q4

REPORT INFORMATION
  Report Type: 
  Country: None (occurrence: None)
  Receive Date: 20111121
  Receipt Date: 20110906
  Transmission Date: 20120403
  Serious: No
  Sender: FDA-Public Use
  Company Number: 1000023511

PATIENT
  Age: 79 Year
  Sex: Female

DRUGS (3)
  1. ASPIRIN [Concomitant]
  2. VITAMINS NOS (VITAMINS NOS) (VITAMINS NOS) [Concomitant]
  3. VIIBRYD [Suspect]
     Indication: DEPRESSION
     Dosage: 10 MG (10 MG,1 IN 1 D),ORAL
     Route: 048
     Dates: start: 20110831

REACTIONS (2)
  - NAUSEA [None]
  - FATIGUE [None]
